FAERS Safety Report 12605836 (Version 2)
Quarter: 2016Q3

REPORT INFORMATION
  Report Type: Report from Study
  Country: KR (occurrence: KR)
  Receive Date: 20160729
  Receipt Date: 20160906
  Transmission Date: 20161109
  Serious: Yes (Life-Threatening, Hospitalization)
  Sender: FDA-Public Use
  Company Number: PHHY2016KR103161

PATIENT
  Age: 65 Year
  Sex: Male
  Weight: 63 kg

DRUGS (8)
  1. MYPOL [Concomitant]
     Indication: CANCER PAIN
     Dosage: 6 DF, UNK
     Route: 065
     Dates: start: 20160720
  2. ULISTIN [Concomitant]
     Active Substance: ULINASTATIN
     Indication: BLOOD GLUCOSE ABNORMAL
     Dosage: 10000 IN 3 AMPOULE
     Route: 065
     Dates: start: 20160714
  3. VOTRIENT [Suspect]
     Active Substance: PAZOPANIB HYDROCHLORIDE
     Dosage: UNK
     Route: 048
     Dates: start: 20160728
  4. STOGAR [Concomitant]
     Active Substance: LAFUTIDINE
     Indication: PRODUCT USED FOR UNKNOWN INDICATION
     Dosage: 2 DF, BID, FOR 8 DAYS
     Route: 048
     Dates: start: 20160720
  5. PHAZYME [Concomitant]
     Active Substance: DIMETHICONE 410
     Indication: PRODUCT USED FOR UNKNOWN INDICATION
     Dosage: 3 DF, UNK
     Route: 065
     Dates: start: 20160720
  6. CURASTHEN [Concomitant]
     Indication: FATIGUE
     Dosage: 3 DF, TID FOR 8 DAYS
     Route: 048
     Dates: start: 20160720
  7. VOTRIENT [Suspect]
     Active Substance: PAZOPANIB HYDROCHLORIDE
     Indication: RENAL CELL CARCINOMA
     Dosage: 800 MG, QD
     Route: 048
     Dates: start: 20151125, end: 20160712
  8. LACIDOFIL [Concomitant]
     Active Substance: LACTOBACILLUS ACIDOPHILUS\LACTOBACILLUS RHAMNOSUS
     Indication: PRODUCT USED FOR UNKNOWN INDICATION
     Dosage: 2 DF, BID, FOR 8 DAYS
     Route: 048
     Dates: start: 20160720

REACTIONS (4)
  - Abdominal pain lower [Recovered/Resolved]
  - Peritonitis [Recovered/Resolved]
  - C-reactive protein increased [Unknown]
  - Ileal perforation [Recovered/Resolved]

NARRATIVE: CASE EVENT DATE: 20160713
